FAERS Safety Report 24654165 (Version 1)
Quarter: 2024Q4

REPORT INFORMATION
  Report Type: Spontaneous
  Country: US (occurrence: US)
  Receive Date: 20241122
  Receipt Date: 20241122
  Transmission Date: 20250115
  Serious: No
  Sender: PFIZER
  Company Number: US-PFIZER INC-202400201892

PATIENT
  Age: 20 Year
  Sex: Male

DRUGS (1)
  1. OXBRYTA [Suspect]
     Active Substance: VOXELOTOR
     Dosage: 1000 MG (2 TABLETS OF 500 MG), 1X/DAY
     Route: 048

REACTIONS (2)
  - Off label use [Unknown]
  - Gastrointestinal disorder [Unknown]
